FAERS Safety Report 7415409-1 (Version None)
Quarter: 2011Q2

REPORT INFORMATION
  Report Type: 
  Country: None (occurrence: None)
  Receive Date: 20110414
  Receipt Date: 20110407
  Transmission Date: 20111010
  Serious: Yes (Other)
  Sender: FDA-Public Use
  Company Number: B0712906A

PATIENT
  Age: 37 Year
  Sex: Male

DRUGS (4)
  1. PREDNISONE [Suspect]
     Route: 048
  2. TRIZIVIR [Suspect]
     Route: 048
  3. CYCLOSPORINE [Suspect]
     Dosage: 400MG PER DAY
     Route: 048
  4. CALCIMAGON-D3 [Concomitant]

REACTIONS (2)
  - PHOTOSENSITIVITY REACTION [None]
  - TYPE I HYPERSENSITIVITY [None]
